FAERS Safety Report 5051409-7 (Version None)
Quarter: 2006Q3

REPORT INFORMATION
  Report Type: 
  Country: None (occurrence: None)
  Receive Date: 20060710
  Receipt Date: 20060626
  Transmission Date: 20061208
  Serious: Yes (Other)
  Sender: FDA-Public Use
  Company Number: 2006AP000478

PATIENT
  Age: 54 Year
  Sex: Female

DRUGS (6)
  1. TERAZOSIN HCL CAPSULES (1 MG) [Suspect]
     Indication: HYPERTENSION
     Dosage: 1 MG;HS;PO
     Route: 048
     Dates: start: 20060623, end: 20060626
  2. NORVASC [Concomitant]
  3. GUANFACINE HCL [Concomitant]
  4. AVAPRO [Concomitant]
  5. INSULIN [Concomitant]
  6. SYNTHROID [Concomitant]

REACTIONS (9)
  - BLOOD PRESSURE SYSTOLIC INCREASED [None]
  - ERYTHROPSIA [None]
  - EYE HAEMORRHAGE [None]
  - EYE OPERATION COMPLICATION [None]
  - SCAR [None]
  - TREATMENT NONCOMPLIANCE [None]
  - VISION BLURRED [None]
  - VISUAL DISTURBANCE [None]
  - VITREOUS FLOATERS [None]
